FAERS Safety Report 5402168-7 (Version None)
Quarter: 2007Q3

REPORT INFORMATION
  Report Type: 
  Country: None (occurrence: None)
  Receive Date: 20070730
  Receipt Date: 20070723
  Transmission Date: 20080115
  Serious: Yes (Hospitalization)
  Sender: FDA-Public Use
  Company Number: 163-21880-07060242

PATIENT
  Age: 59 Year
  Sex: Female

DRUGS (14)
  1. REVLIMID [Suspect]
     Indication: OESOPHAGEAL CARCINOMA
     Dosage: ORAL; 20 MG, QD X 14 DAYS, ORAL
     Route: 048
     Dates: start: 20070522, end: 20070604
  2. REVLIMID [Suspect]
     Indication: OESOPHAGEAL CARCINOMA
     Dosage: ORAL; 20 MG, QD X 14 DAYS, ORAL
     Route: 048
     Dates: start: 20070320
  3. DOCETAXEL [Suspect]
     Indication: OESOPHAGEAL CARCINOMA
     Dosage: 75 MG/M2, Q21 DAYS,
     Dates: start: 20070522
  4. ASPIRIN [Concomitant]
  5. FERROUS SULFATE TAB [Concomitant]
  6. REMERON [Concomitant]
  7. CENTRUM SILVER (CENTRUM SILVER) [Concomitant]
  8. CALCIUM WITH VITAMIN D (CALCIUM WITH VITAMIN D) [Concomitant]
  9. ZINC (ZINC) (TABLETS) [Concomitant]
  10. VITAMIN B6 [Concomitant]
  11. FLAX SEED OIL (LINSEED OIL) [Concomitant]
  12. DEXAMETHASONE TAB [Concomitant]
  13. POTASSIUM CHLORIDE [Concomitant]
  14. PERCOCET [Concomitant]

REACTIONS (6)
  - GASTRIC ULCER [None]
  - GASTROINTESTINAL HAEMORRHAGE [None]
  - HAEMATEMESIS [None]
  - HAEMATOCRIT DECREASED [None]
  - HAEMOGLOBIN DECREASED [None]
  - NAUSEA [None]
